FAERS Safety Report 21435568 (Version 8)
Quarter: 2023Q1

REPORT INFORMATION
  Report Type: Report from Study
  Country: CA (occurrence: CA)
  Receive Date: 20221010
  Receipt Date: 20230214
  Transmission Date: 20230418
  Serious: Yes (Hospitalization, Other)
  Sender: FDA-Public Use
  Company Number: CA-GLAXOSMITHKLINE-CA2022098288

PATIENT

DRUGS (8)
  1. MEPOLIZUMAB [Suspect]
     Active Substance: MEPOLIZUMAB
     Indication: Asthma
     Dosage: 100 MG, Z, EVERY 4 WEEKS
     Route: 058
     Dates: start: 20180720
  2. MEPOLIZUMAB [Suspect]
     Active Substance: MEPOLIZUMAB
     Dosage: 100 MG, Z, EVERY 4 WEEKS
     Route: 058
  3. MEPOLIZUMAB [Suspect]
     Active Substance: MEPOLIZUMAB
     Dosage: 100 MG, Z, EVERY 4 WEEKS
     Route: 058
     Dates: start: 20180720
  4. MEPOLIZUMAB [Suspect]
     Active Substance: MEPOLIZUMAB
     Dosage: 100 MG, Z, EVERY 4 WEEKS
     Route: 058
     Dates: start: 20180720
  5. CEFUROXIME [Concomitant]
     Active Substance: CEFUROXIME
     Indication: Product used for unknown indication
     Dosage: 250 MG, BID X 7 DAYS
  6. RAMIPRIL [Concomitant]
     Active Substance: RAMIPRIL
     Indication: Product used for unknown indication
     Dosage: 2.5 MG
  7. PREDNISONE [Concomitant]
     Active Substance: PREDNISONE
     Indication: Dyspnoea
     Dosage: UNK
     Dates: start: 2022
  8. PREDNISONE [Concomitant]
     Active Substance: PREDNISONE
     Indication: Cough
     Dosage: 5 MG

REACTIONS (13)
  - Hip surgery [Unknown]
  - Pneumonia [Unknown]
  - Nephrolithiasis [Unknown]
  - Renal disorder [Unknown]
  - Dyspnoea exertional [Unknown]
  - Cough [Unknown]
  - Urinary tract infection [Unknown]
  - Arthralgia [Unknown]
  - Heart rate increased [Recovering/Resolving]
  - Fall [Unknown]
  - Contusion [Unknown]
  - Oxygen saturation decreased [Recovering/Resolving]
  - Respiratory rate increased [Unknown]

NARRATIVE: CASE EVENT DATE: 20220101
